FAERS Safety Report 6035888-4 (Version None)
Quarter: 2009Q1

REPORT INFORMATION
  Report Type: 
  Country: None (occurrence: None)
  Receive Date: 20090113
  Receipt Date: 20090109
  Transmission Date: 20090719
  Serious: Yes (Hospitalization)
  Sender: FDA-Public Use
  Company Number: A0718166A

PATIENT
  Age: 68 Year
  Sex: Male
  Weight: 104.5 kg

DRUGS (3)
  1. AVANDIA [Suspect]
     Indication: TYPE 2 DIABETES MELLITUS
     Dosage: 4MG TWICE PER DAY
     Route: 048
     Dates: start: 20000322, end: 20050501
  2. INSULIN [Concomitant]
  3. ATENOLOL [Concomitant]
     Dates: start: 20000101, end: 20020101

REACTIONS (3)
  - CARDIAC FAILURE CONGESTIVE [None]
  - HEART INJURY [None]
  - TRANSIENT ISCHAEMIC ATTACK [None]
